FAERS Safety Report 9299915 (Version 1)
Quarter: 2012Q4

REPORT INFORMATION
  Report Type: Spontaneous
  Country: US (occurrence: None)
  Receive Date: 20121106
  Receipt Date: 20121106
  Transmission Date: 20130627
  Serious: Yes (Other)
  Sender: FDA-Public Use
  Company Number: 2012MA012701

PATIENT
  Age: 81 Year
  Sex: Female

DRUGS (1)
  1. MINOXIDIL TOPICAL SOLUTION USP, 5% (EXTRA STRENGTH FOR MEN) (ALPHARMA) [Suspect]
     Route: 048

REACTIONS (2)
  - Headache [None]
  - Wrong drug administered [None]
